FAERS Safety Report 6211690-5 (Version None)
Quarter: 2009Q2

REPORT INFORMATION
  Report Type: 
  Country: None (occurrence: None)
  Receive Date: 20090602
  Receipt Date: 20090527
  Transmission Date: 20091009
  Serious: Yes (Hospitalization)
  Sender: FDA-Public Use
  Company Number: B0574049A

PATIENT
  Sex: Female
  Weight: 57 kg

DRUGS (4)
  1. LAPATINIB [Suspect]
     Indication: BREAST CANCER
     Dates: start: 20090428, end: 20090510
  2. EPIRUBICIN [Suspect]
     Indication: BREAST CANCER
     Dates: start: 20090428, end: 20090428
  3. CYCLOPHOSPHAMIDE [Suspect]
     Indication: BREAST CANCER
     Route: 042
     Dates: start: 20090428
  4. DIOVAN [Concomitant]

REACTIONS (2)
  - FEBRILE NEUTROPENIA [None]
  - INFLUENZA [None]
